FAERS Safety Report 25077076 (Version 2)
Quarter: 2025Q1

REPORT INFORMATION
  Report Type: Report from Study
  Country: KR (occurrence: KR)
  Receive Date: 20250314
  Receipt Date: 20250328
  Transmission Date: 20250409
  Serious: Yes (Hospitalization)
  Sender: ABBVIE
  Company Number: KR-ABBVIE-6172249

PATIENT
  Age: 67 Year
  Sex: Male
  Weight: 70 kg

DRUGS (19)
  1. VENETOCLAX [Suspect]
     Active Substance: VENETOCLAX
     Indication: Acute myeloid leukaemia
     Route: 048
     Dates: start: 20250204, end: 20250204
  2. VENETOCLAX [Suspect]
     Active Substance: VENETOCLAX
     Indication: Acute myeloid leukaemia
     Route: 048
     Dates: start: 20250206, end: 20250220
  3. VENETOCLAX [Suspect]
     Active Substance: VENETOCLAX
     Indication: Acute myeloid leukaemia
     Route: 048
     Dates: start: 20250205, end: 20250205
  4. VENETOCLAX [Suspect]
     Active Substance: VENETOCLAX
     Indication: Acute myeloid leukaemia
     Route: 048
     Dates: start: 20250311
  5. SEROQUEL [Concomitant]
     Active Substance: QUETIAPINE FUMARATE
     Indication: Delirium
     Route: 048
     Dates: start: 20250228
  6. PLAVIX [Concomitant]
     Active Substance: CLOPIDOGREL BISULFATE
     Indication: Cerebral infarction
     Dosage: PLAVIX TAB 75MG
     Route: 048
     Dates: start: 20250202
  7. QUETIAPINE FUMARATE [Concomitant]
     Active Substance: QUETIAPINE FUMARATE
     Indication: Cerebral infarction
     Dosage: QUETAPIN TAB 25MG
     Route: 048
     Dates: start: 20250120, end: 20250227
  8. OMACOR [Concomitant]
     Active Substance: OMEGA-3-ACID ETHYL ESTERS
     Indication: Dyslipidaemia
     Dosage: OMACOR SC
     Route: 048
     Dates: start: 2015
  9. EZETIMIBE\ROSUVASTATIN [Concomitant]
     Active Substance: EZETIMIBE\ROSUVASTATIN
     Indication: Hypertension
     Dosage: ROSUZET TAB 10/20MG
     Route: 048
     Dates: start: 2015
  10. DACOGEN [Concomitant]
     Active Substance: DECITABINE
     Indication: Acute myeloid leukaemia
     Route: 042
     Dates: start: 20250204
  11. Kyungdong aspirin [Concomitant]
     Indication: Acute myocardial infarction
     Dosage: KWANGDONG ASPIRIN ENTERIC COATED TAB 100MG
     Route: 048
     Dates: start: 2015, end: 20250201
  12. DIABEX [Concomitant]
     Active Substance: METFORMIN HYDROCHLORIDE
     Indication: Type 2 diabetes mellitus
     Dosage: DIABEX XR TAB 1000MG
     Route: 048
     Dates: start: 2015
  13. Eltan sr [Concomitant]
     Indication: Acute myocardial infarction
     Dosage: ELTAN SR TAB 60MG
     Route: 048
     Dates: start: 2015
  14. Wondron 5 [Concomitant]
     Indication: Dementia
     Dosage: UNIT DOSE: 1 PATCH?ROUTE OF ADMINISTRATION OF WONDRON PATCH 5: PERCUTANEOUS ABSORPTION
     Dates: start: 20250221
  15. JANUVIA [Concomitant]
     Active Substance: SITAGLIPTIN PHOSPHATE
     Indication: Type 2 diabetes mellitus
     Dosage: JANUVIA TAB 100MG
     Route: 048
     Dates: start: 2015
  16. DAPAGLIFLOZIN [Concomitant]
     Active Substance: DAPAGLIFLOZIN
     Indication: Type 2 diabetes mellitus
     Dosage: FORXIGA TAB 10MG
     Route: 048
     Dates: start: 2015
  17. PORTALAC [Concomitant]
     Active Substance: LACTULOSE
     Indication: Constipation prophylaxis
     Route: 048
     Dates: start: 20250306, end: 20250308
  18. Conbloc [Concomitant]
     Indication: Hypertension
     Dosage: CONBLOC TAB 1.25MG
     Route: 048
     Dates: start: 2015
  19. BANAN [Concomitant]
     Active Substance: CEFPODOXIME PROXETIL
     Indication: Gingivitis
     Route: 048
     Dates: start: 20250207, end: 20250226

REACTIONS (1)
  - Pyrexia [Recovered/Resolved]

NARRATIVE: CASE EVENT DATE: 20250225
